FAERS Safety Report 9400381 (Version 1)
Quarter: 2013Q3

REPORT INFORMATION
  Report Type: Spontaneous
  Country: CH (occurrence: CH)
  Receive Date: 20130715
  Receipt Date: 20130715
  Transmission Date: 20140515
  Serious: Yes (Hospitalization)
  Sender: FDA-Public Use
  Company Number: CH-MYLANLABS-2013S1014844

PATIENT
  Age: 40 Year
  Sex: Male

DRUGS (1)
  1. PHENYTOIN [Suspect]
     Indication: CONVULSION PROPHYLAXIS
     Route: 065

REACTIONS (4)
  - Hypocalcaemia [Recovered/Resolved]
  - Epilepsy [Recovered/Resolved]
  - Rhabdomyolysis [Unknown]
  - Vitamin D deficiency [Recovered/Resolved]
